FAERS Safety Report 10783746 (Version 1)
Quarter: 2015Q1

REPORT INFORMATION
  Report Type: Spontaneous
  Country: US (occurrence: US)
  Receive Date: 20150210
  Receipt Date: 20150210
  Transmission Date: 20150721
  Serious: No
  Sender: FDA-Public Use
  Company Number: US-ENDO PHARMACEUTICALS INC.-PERP20140001

PATIENT
  Sex: Female

DRUGS (3)
  1. PERPHENAZINE TABLETS 2MG [Suspect]
     Active Substance: PERPHENAZINE
     Indication: OBSESSIVE-COMPULSIVE DISORDER
     Route: 048
     Dates: start: 201312
  2. PERPHENAZINE TABLETS 2MG [Suspect]
     Active Substance: PERPHENAZINE
     Route: 048
  3. PERPHENAZINE. [Concomitant]
     Active Substance: PERPHENAZINE
     Indication: OBSESSIVE-COMPULSIVE DISORDER
     Route: 048
     Dates: end: 201312

REACTIONS (7)
  - Obsessive-compulsive disorder [Not Recovered/Not Resolved]
  - Insomnia [Not Recovered/Not Resolved]
  - Tinnitus [Not Recovered/Not Resolved]
  - Sinus disorder [Not Recovered/Not Resolved]
  - Drug ineffective for unapproved indication [Not Recovered/Not Resolved]
  - Headache [Not Recovered/Not Resolved]
  - Condition aggravated [Not Recovered/Not Resolved]
